FAERS Safety Report 9605219 (Version 2)
Quarter: 2013Q4

REPORT INFORMATION
  Report Type: Report from Study
  Country: US (occurrence: US)
  Receive Date: 20131008
  Receipt Date: 20131021
  Transmission Date: 20140711
  Serious: Yes (Hospitalization, Disabling, Other)
  Sender: FDA-Public Use
  Company Number: US-ACTELION-A-NJ2013-89329

PATIENT
  Age: 59 Year
  Sex: Female

DRUGS (31)
  1. TRACLEER [Suspect]
     Indication: PULMONARY ARTERIAL HYPERTENSION
     Dosage: 125 MG, BID
     Route: 048
     Dates: start: 20050814
  2. BONIVA [Concomitant]
     Dosage: EVERY 3 MONTHS
     Dates: start: 2010
  3. NORVASC [Concomitant]
     Dosage: 10 MG, QD
     Dates: start: 2010
  4. ASPIRIN [Concomitant]
     Dosage: 81 MG, QD
     Dates: start: 1990
  5. CALCIUM [Concomitant]
     Dosage: 600 MG, BID
     Dates: start: 2010
  6. CARBATROL [Concomitant]
     Dosage: 200 MG, BID
     Dates: start: 2010
  7. EVOXAC [Concomitant]
     Dosage: 30 MG, WITH MEALS
     Dates: start: 2010
  8. CLINDAMYCIN [Concomitant]
     Dosage: 0.05 MG, BID
     Dates: start: 2010
  9. COREG [Concomitant]
     Dosage: 80 MG, QD
     Dates: start: 2010
  10. FLEXERIL [Concomitant]
     Dosage: 10 MG, TID
     Dates: start: 2010
  11. RESTASIS [Concomitant]
     Dosage: EACH EYE BID
     Dates: start: 2010
  12. VOLTAREN [Concomitant]
     Dosage: APPLY TO FEET THREE TIMES A DAY
     Dates: start: 20130920
  13. PREMPRO [Concomitant]
     Dosage: 0.45 MG/1.5 MG DAILY
     Dates: start: 2010
  14. LASIX [Concomitant]
     Dosage: 20 MG, QD
     Dates: start: 2010
  15. AMBIEN [Concomitant]
     Dosage: 10 MG, PRN
  16. PLAQUENIL [Concomitant]
     Dosage: 200 MG, BID
     Dates: start: 1989
  17. PREVACID [Concomitant]
     Dosage: 30 MG, BID
     Dates: start: 2010
  18. LIDOCAINE [Concomitant]
     Dosage: ON FINGERS BID
     Dates: start: 2010
  19. LOSARTAN [Concomitant]
     Dosage: 100 MG, QD
     Dates: start: 2010
  20. MOBIC [Concomitant]
     Dosage: 15 MG, QD
     Dates: start: 2010
  21. TREXALL [Concomitant]
     Dosage: 0.4 ML, EVERY 7 DAYS
     Dates: start: 2010
  22. REGLAN [Concomitant]
     Dosage: 10 MG, BID
     Dates: start: 2010
  23. MIRALAX [Concomitant]
     Dosage: UNK, PRN
     Dates: start: 2010
  24. CELLCEPT [Concomitant]
     Dosage: 250 MG, TID
     Dates: start: 2010
  25. NITROGLYCERIN [Concomitant]
     Dosage: 0.4 MG, PRN
     Dates: start: 2010
  26. PREDNISONE [Concomitant]
     Dosage: 5 MG, QD
     Dates: start: 1985
  27. REVATIO [Concomitant]
     Dosage: 20 MG, BID
  28. SPIRONOLACTONE [Concomitant]
     Dosage: 25 MG, QD
  29. TRAZODONE [Concomitant]
     Dosage: 100 MG, QD
     Dates: start: 2010
  30. EFFEXOR [Concomitant]
     Dosage: 150 MG, QD
     Dates: start: 2010
  31. VITAMIN E [Concomitant]
     Dosage: 600 U, UNK
     Dates: start: 2010

REACTIONS (2)
  - Raynaud^s phenomenon [Unknown]
  - Finger amputation [Unknown]
